FAERS Safety Report 8766338 (Version 1)
Quarter: 2012Q4

REPORT INFORMATION
  Report Type: Report from Study
  Country: US (occurrence: US)
  Receive Date: 20120904
  Receipt Date: 20120904
  Transmission Date: 20130627
  Serious: Yes (Death, Hospitalization)
  Sender: FDA-Public Use
  Company Number: US-ROCHE-1111183

PATIENT
  Age: 67 Year
  Sex: Female
  Weight: 61 kg

DRUGS (12)
  1. AVASTIN [Suspect]
     Indication: NON-SMALL CELL LUNG CANCER STAGE IV
     Dosage: Last dose prior to the event on 11/Feb/2010
     Route: 042
     Dates: start: 20100122
  2. PEMETREXED [Suspect]
     Indication: NON-SMALL CELL LUNG CANCER STAGE IV
     Dosage: Last dose prior to the event on 11/Feb/2010
     Route: 042
     Dates: start: 20100122
  3. CARBOPLATIN [Suspect]
     Indication: NON-SMALL CELL LUNG CANCER STAGE IV
     Dosage: Last dose prior to the event on 11/Feb/2010
     Route: 042
     Dates: start: 20100122
  4. OXYCONTIN [Concomitant]
  5. OXYCODONE [Concomitant]
     Route: 065
     Dates: start: 20100113
  6. FENTANYL [Concomitant]
     Route: 065
     Dates: start: 20100129
  7. FOLIC ACID [Concomitant]
     Route: 065
     Dates: start: 20100121
  8. ZOFRAN [Concomitant]
  9. MIRALAX [Concomitant]
     Route: 065
     Dates: start: 20100225
  10. MEGACE [Concomitant]
  11. VITAMIN B12 [Concomitant]
     Route: 065
     Dates: start: 20100121
  12. ADVAIR [Concomitant]
     Route: 065
     Dates: start: 200910

REACTIONS (3)
  - Sepsis [Fatal]
  - Constipation [Unknown]
  - Large intestine perforation [Unknown]
